FAERS Safety Report 24937532 (Version 3)
Quarter: 2025Q1

REPORT INFORMATION
  Report Type: Spontaneous
  Country: CA (occurrence: CA)
  Receive Date: 20250206
  Receipt Date: 20250221
  Transmission Date: 20250409
  Serious: Yes (Life-Threatening, Other)
  Sender: PFIZER
  Company Number: CA-PFIZER INC-PV202400167820

PATIENT
  Age: 58 Year
  Sex: Male
  Weight: 85.5 kg

DRUGS (14)
  1. RUXIENCE [Suspect]
     Active Substance: RITUXIMAB-PVVR
     Indication: Autoimmune haemolytic anaemia
     Dosage: 800 MG, WEEKLY
     Route: 042
     Dates: start: 20250117, end: 20250117
  2. RUXIENCE [Suspect]
     Active Substance: RITUXIMAB-PVVR
     Dosage: 815.24 MG,  WEEKLYX4, INFUSION#2
     Route: 042
     Dates: start: 20250124
  3. RUXIENCE [Suspect]
     Active Substance: RITUXIMAB-PVVR
     Dosage: 815.24 MG,  WEEKLYX4, INFUSION#2
     Route: 042
     Dates: start: 20250124
  4. RUXIENCE [Suspect]
     Active Substance: RITUXIMAB-PVVR
     Dosage: 837.45 MG, WEEKLY
     Route: 042
     Dates: start: 20250131
  5. RUXIENCE [Suspect]
     Active Substance: RITUXIMAB-PVVR
     Dosage: 837.45 MG, WEEKLY
     Route: 042
     Dates: start: 20250131
  6. RUXIENCE [Suspect]
     Active Substance: RITUXIMAB-PVVR
     Dosage: 817 MG, WEEKLY
     Route: 042
     Dates: start: 20250207
  7. TYLENOL [Concomitant]
     Active Substance: ACETAMINOPHEN
     Indication: Premedication
     Dates: start: 20250117
  8. TRAMADOL [Concomitant]
     Active Substance: TRAMADOL
     Route: 048
  9. LANREOTIDE [Concomitant]
     Active Substance: LANREOTIDE
     Route: 058
  10. CRESTOR [Concomitant]
     Active Substance: ROSUVASTATIN CALCIUM
     Route: 048
  11. CHOLECALCIFEROL [Concomitant]
     Active Substance: CHOLECALCIFEROL
  12. PANTOPRAZOLE SODIUM [Concomitant]
     Active Substance: PANTOPRAZOLE SODIUM
     Route: 048
  13. DEXAMETHASONE [Concomitant]
     Active Substance: DEXAMETHASONE
  14. DEXAMETHASONE [Concomitant]
     Active Substance: DEXAMETHASONE
     Route: 048

REACTIONS (5)
  - Ischaemia [Recovered/Resolved]
  - Blood pressure fluctuation [Recovered/Resolved]
  - Poor venous access [Recovered/Resolved]
  - Weight decreased [Not Recovered/Not Resolved]
  - Off label use [Unknown]

NARRATIVE: CASE EVENT DATE: 20250101
